FAERS Safety Report 21401618 (Version 1)
Quarter: 2022Q4

REPORT INFORMATION
  Report Type: Spontaneous
  Country: US (occurrence: US)
  Receive Date: 20221003
  Receipt Date: 20221003
  Transmission Date: 20230113
  Serious: No
  Sender: FDA-Public Use
  Company Number: US-AMGEN-USASP2022165563

PATIENT
  Age: 75 Year
  Sex: Female

DRUGS (1)
  1. REPATHA [Suspect]
     Active Substance: EVOLOCUMAB
     Indication: Product used for unknown indication
     Dosage: 420 MILLIGRAM, QMO
     Route: 065

REACTIONS (4)
  - Ankle fracture [Unknown]
  - Product storage error [Unknown]
  - Fall [Unknown]
  - Intercepted product administration error [Unknown]

NARRATIVE: CASE EVENT DATE: 20220520
